FAERS Safety Report 5999466-5 (Version None)
Quarter: 2008Q4

REPORT INFORMATION
  Report Type: 
  Country: None (occurrence: None)
  Receive Date: 20081211
  Receipt Date: 20081201
  Transmission Date: 20090506
  Serious: Yes (Life-Threatening, Hospitalization)
  Sender: FDA-Public Use
  Company Number: GXKR2008TW11449

PATIENT
  Age: 45 Year
  Sex: Male

DRUGS (4)
  1. METHYLPREDNISOLONE 4MG TAB [Suspect]
     Indication: HEART TRANSPLANT REJECTION
     Dosage: 500 MG, INTRAVENOUS
     Route: 042
  2. CYCLOSPORINE [Concomitant]
  3. MYCOPHENOLATE MOFETIL [Concomitant]
  4. STEROIDS NOS (NO INGREDIENTS/SUBSTANCES) [Concomitant]

REACTIONS (7)
  - BRADYCARDIA [None]
  - CARDIAC ARREST [None]
  - CIRCULATORY COLLAPSE [None]
  - EJECTION FRACTION DECREASED [None]
  - EXTRACORPOREAL MEMBRANE OXYGENATION [None]
  - ORTHOPNOEA [None]
  - OXYGEN SATURATION DECREASED [None]
